FAERS Safety Report 9165017 (Version 1)
Quarter: 2013Q1

REPORT INFORMATION
  Report Type: Spontaneous
  Country: US (occurrence: None)
  Receive Date: 20130226
  Receipt Date: 20130226
  Transmission Date: 20140127
  Serious: Yes (Hospitalization)
  Sender: FDA-Public Use
  Company Number: VAL_01430_2013

PATIENT
  Age: 91 Year
  Sex: Male

DRUGS (11)
  1. METOPROLOL [Suspect]
     Indication: PRODUCT USED FOR UNKNOWN INDICATION
     Dosage: (DF)
  2. DIGOXIN [Suspect]
     Indication: PRODUCT USED FOR UNKNOWN INDICATION
     Dosage: (DF)
  3. SAXAGLIPTIN [Suspect]
     Indication: TYPE 2 DIABETES MELLITUS
     Dosage: (DR [REGIMEN #1])
     Dates: start: 20100730, end: 20110224
  4. PLACEBO [Suspect]
     Indication: TYPE 2 DIABETES MELLITUS
     Dosage: (DR REGIMEN #1)
     Dates: start: 20100730, end: 20110224
  5. GLIMEPIRIDE [Suspect]
     Indication: TYPE 2 DIABETES MELLITUS
     Dosage: (DR REGIMEN #1)
  6. ASPIRIN (UNKNOWN) [Concomitant]
  7. ANGIOTENSIN CONVERTING ENZYME BLOCKERS-NO INGREDIENTS/SUBSTANCES (UNKNOWN) [Concomitant]
  8. DIURETICS (UNKNOWN) [Concomitant]
  9. ORGANIC NITRATES (UNKNOWN) [Concomitant]
  10. ANTIARRHYTHMICS, CLASS I AND III (UNKNOWN [Concomitant]
  11. UNSPECIFIED STATIN (UNKNOWN) [Concomitant]

REACTIONS (7)
  - Cellulitis [None]
  - Oedema peripheral [None]
  - Sick sinus syndrome [None]
  - Dyspnoea [None]
  - Heart rate irregular [None]
  - Diabetes mellitus inadequate control [None]
  - Drug administration error [None]
